FAERS Safety Report 18332095 (Version 1)
Quarter: 2020Q4

REPORT INFORMATION
  Report Type: Spontaneous
  Country: US (occurrence: US)
  Receive Date: 20201001
  Receipt Date: 20201001
  Transmission Date: 20210113
  Serious: No
  Sender: FDA-Public Use
  Company Number: US-ELI_LILLY_AND_COMPANY-US202009012564

PATIENT
  Sex: Female

DRUGS (2)
  1. VERZENIO [Suspect]
     Active Substance: ABEMACICLIB
     Indication: BREAST CANCER METASTATIC
     Dosage: 200 MG, BID
     Route: 048
     Dates: start: 202005
  2. LETROZOLE. [Concomitant]
     Active Substance: LETROZOLE

REACTIONS (3)
  - Abdominal pain [Unknown]
  - Alopecia [Not Recovered/Not Resolved]
  - Diarrhoea [Not Recovered/Not Resolved]
